FAERS Safety Report 6582860-1 (Version None)
Quarter: 2010Q1

REPORT INFORMATION
  Report Type: 
  Country: None (occurrence: None)
  Receive Date: 20100216
  Receipt Date: 20100204
  Transmission Date: 20100710
  Serious: Yes (Hospitalization)
  Sender: FDA-Public Use
  Company Number: AR-PFIZER INC-2009314190

PATIENT
  Age: 50 Year
  Sex: Male
  Weight: 63 kg

DRUGS (2)
  1. SUNITINIB MALATE [Suspect]
     Indication: METASTATIC RENAL CELL CARCINOMA
     Dosage: 37.5 MG, 1X/DAY
     Route: 048
     Dates: start: 20071107, end: 20091220
  2. OMEPRAZOLE [Concomitant]
     Indication: GASTRITIS PROPHYLAXIS
     Dosage: 40 MG, 1X/DAY,SOS
     Route: 048
     Dates: start: 20071130, end: 20091220

REACTIONS (1)
  - CHOLECYSTITIS ACUTE [None]
